FAERS Safety Report 23299829 (Version 1)
Quarter: 2023Q4

REPORT INFORMATION
  Report Type: Spontaneous
  Country: US (occurrence: US)
  Receive Date: 20231215
  Receipt Date: 20231215
  Transmission Date: 20240110
  Serious: Yes (Other)
  Sender: FDA-Public Use
  Company Number: US-STRIDES ARCOLAB LIMITED-2023SP017183

PATIENT

DRUGS (4)
  1. MYCOPHENOLATE MOFETIL [Suspect]
     Active Substance: MYCOPHENOLATE MOFETIL
     Indication: Prophylaxis against graft versus host disease
     Dosage: UNK, FROM (DAY +5 TO DAY+35)
     Route: 065
  2. CYCLOPHOSPHAMIDE [Suspect]
     Active Substance: CYCLOPHOSPHAMIDE
     Indication: Bone marrow conditioning regimen
     Dosage: 14.5 MILLIGRAM/KILOGRAM PER DAY (DOSE: IV INFUSION CYCLOPHOSPHAMIDE 1 TO 2 HOUR AT 14.5 MG/KG DAILY
     Route: 042
  3. CYCLOPHOSPHAMIDE [Suspect]
     Active Substance: CYCLOPHOSPHAMIDE
     Indication: Prophylaxis against graft versus host disease
     Dosage: 50 MILLIGRAM/KILOGRAM PER DAY (DOSE POST TRANSPLANT: IV CYCLOPHOPHAMIDE, AT 50 MG/KG/DAY ON (DAYS+3
     Route: 042
  4. FLUDARABINE [Suspect]
     Active Substance: FLUDARABINE PHOSPHATE
     Indication: Bone marrow conditioning regimen
     Dosage: 30MILLIGRAM/SQ. METER/DAY FOR FIVE DAYS (DAY -6 TO DAY -2) FOR A TOTAL DOSE OF 150MILLIGRAM/SQ. METE
     Route: 042

REACTIONS (1)
  - Myeloid leukaemia [Unknown]
